FAERS Safety Report 13340967 (Version 1)
Quarter: 2017Q1

REPORT INFORMATION
  Report Type: Spontaneous
  Country: US (occurrence: US)
  Receive Date: 20170315
  Receipt Date: 20170315
  Transmission Date: 20170428
  Serious: No
  Sender: FDA-Public Use
  Company Number: None

PATIENT
  Age: 35 Year
  Sex: Female

DRUGS (1)
  1. NEULASTA [Suspect]
     Active Substance: PEGFILGRASTIM
     Indication: BREAST CANCER FEMALE
     Dosage: 6MG 24HRS AFTER CH SQ
     Route: 058

REACTIONS (4)
  - Product label confusion [None]
  - Accidental overdose [None]
  - Inappropriate schedule of drug administration [None]
  - Myalgia [None]

NARRATIVE: CASE EVENT DATE: 20170315
